FAERS Safety Report 22210871 (Version 1)
Quarter: 2023Q2

REPORT INFORMATION
  Report Type: Spontaneous
  Country: GB (occurrence: GB)
  Receive Date: 20230414
  Receipt Date: 20230414
  Transmission Date: 20230722
  Serious: Yes (Other)
  Sender: FDA-Public Use
  Company Number: GB-MYLANLABS-2023M1038065

PATIENT
  Age: 6 Decade
  Sex: Female

DRUGS (6)
  1. CETIRIZINE [Suspect]
     Active Substance: CETIRIZINE HYDROCHLORIDE
     Indication: Chronic spontaneous urticaria
     Dosage: 20 MILLIGRAM, QD
     Route: 065
  2. OMALIZUMAB [Suspect]
     Active Substance: OMALIZUMAB
     Indication: Chronic spontaneous urticaria
     Dosage: 300 MILLIGRAM, RECEIVED 2 DOSES
     Route: 065
  3. FEXOFENADINE [Concomitant]
     Active Substance: FEXOFENADINE HYDROCHLORIDE
     Indication: Chronic spontaneous urticaria
     Dosage: 720 MILLIGRAM, QD
     Route: 065
  4. PREDNISOLONE [Concomitant]
     Active Substance: PREDNISOLONE
     Indication: Chronic spontaneous urticaria
     Dosage: UNK, 10-15 MG
     Route: 065
  5. DAPSONE [Concomitant]
     Active Substance: DAPSONE
     Indication: Chronic spontaneous urticaria
     Dosage: UNK, STOPPED AFTER 3 MONTHS
     Route: 065
  6. DAPSONE [Concomitant]
     Active Substance: DAPSONE
     Dosage: UNK, CONTINUED FOR ONE YEAR
     Route: 065

REACTIONS (1)
  - Drug ineffective [Unknown]
